FAERS Safety Report 11935670 (Version 3)
Quarter: 2016Q1

REPORT INFORMATION
  Report Type: Spontaneous
  Country: US (occurrence: US)
  Receive Date: 20160121
  Receipt Date: 20160303
  Transmission Date: 20160526
  Serious: Yes (Other)
  Sender: FDA-Public Use
  Company Number: US-OTSUKA-2016_001506

PATIENT
  Age: 59 Year
  Sex: Male
  Weight: 35 kg

DRUGS (2)
  1. SAMSCA [Suspect]
     Active Substance: TOLVAPTAN
     Dosage: CUT UP 15MG INTO 10 OR 15 PIECES, AS NEEDED
     Route: 048
     Dates: start: 20160122
  2. SAMSCA [Suspect]
     Active Substance: TOLVAPTAN
     Indication: HYPONATRAEMIA
     Dosage: 1/2 TABLET
     Route: 065

REACTIONS (6)
  - Hyponatraemia [Unknown]
  - Muscle spasms [Unknown]
  - Nausea [Unknown]
  - Inappropriate schedule of drug administration [Unknown]
  - Prescribed underdose [Unknown]
  - Wrong technique in product usage process [Unknown]

NARRATIVE: CASE EVENT DATE: 20160122
